FAERS Safety Report 10977713 (Version 1)
Quarter: 2015Q1

REPORT INFORMATION
  Report Type: Spontaneous
  Country: US (occurrence: None)
  Receive Date: 20150330
  Receipt Date: 20150330
  Transmission Date: 20150721
  Serious: Yes (Other)
  Sender: FDA-Public Use
  Company Number: FK201501446

PATIENT
  Age: 58 Year
  Sex: Female

DRUGS (1)
  1. DOXORUBICIN (MANUFACTURER UNKNOWN) (DOXORUBICIN HYDROCHLORIDE) (DOXORUBCIN HYDROCHLORIDE) [Suspect]
     Active Substance: DOXORUBICIN
     Indication: ENDOMETRIAL CANCER STAGE III
     Dosage: 40 MG/M2, FOR 5 CYCLES

REACTIONS (3)
  - Palmar-plantar erythrodysaesthesia syndrome [None]
  - Perivascular dermatitis [None]
  - Toxicity to various agents [None]
